FAERS Safety Report 9500718 (Version 5)
Quarter: 2014Q2

REPORT INFORMATION
  Report Type: Report from Study
  Country: US (occurrence: US)
  Receive Date: 20130905
  Receipt Date: 20140414
  Transmission Date: 20141212
  Serious: Yes (Hospitalization)
  Sender: FDA-Public Use
  Company Number: US-SANOFI-AVENTIS-2013SA088457

PATIENT
  Age: 60 Year
  Sex: Female
  Weight: 45.35 kg

DRUGS (11)
  1. AUBAGIO [Suspect]
     Indication: MULTIPLE SCLEROSIS
     Route: 048
     Dates: start: 20130329
  2. ACETAMINOPHEN [Suspect]
     Indication: ARTHRALGIA
     Route: 065
  3. METOPROLOL [Concomitant]
     Indication: ATRIAL FIBRILLATION
  4. LISINOPRIL [Concomitant]
     Indication: ATRIAL FIBRILLATION
  5. MULTAQ [Concomitant]
     Indication: ATRIAL FIBRILLATION
  6. CELEBREX [Concomitant]
     Indication: ARTHRITIS
  7. IMIPRAMINE [Concomitant]
     Indication: IRRITABLE BOWEL SYNDROME
  8. ZYRTEC [Concomitant]
     Indication: HYPERSENSITIVITY
  9. ASPIRIN [Concomitant]
  10. VITAMIN D [Concomitant]
     Dosage: DOSE:1000 UNIT(S)
  11. MULTIVITAMINS [Concomitant]

REACTIONS (4)
  - Arthritis [Recovering/Resolving]
  - Hepatic enzyme abnormal [Recovered/Resolved]
  - Alopecia [Unknown]
  - Drug dose omission [Unknown]
